FAERS Safety Report 7319958-6 (Version None)
Quarter: 2011Q1

REPORT INFORMATION
  Report Type: 
  Country: None (occurrence: None)
  Receive Date: 20110228
  Receipt Date: 20110223
  Transmission Date: 20110831
  Serious: Yes (Death)
  Sender: FDA-Public Use
  Company Number: KR-ASTRAZENECA-2011SE10277

PATIENT
  Sex: Female

DRUGS (1)
  1. PROPOFOL [Suspect]
     Route: 042

REACTIONS (2)
  - RESPIRATORY FAILURE [None]
  - DRUG DEPENDENCE [None]
